FAERS Safety Report 6857933-6 (Version None)
Quarter: 2010Q3

REPORT INFORMATION
  Report Type: 
  Country: None (occurrence: None)
  Receive Date: 20100714
  Receipt Date: 20090421
  Transmission Date: 20110219
  Serious: Yes (Hospitalization)
  Sender: FDA-Public Use
  Company Number: WAES 0904USA03820

PATIENT
  Age: 66 Year
  Sex: Female

DRUGS (2)
  1. PEPCID RPD [Suspect]
     Indication: GASTRITIS EROSIVE
     Dosage: 20 MG/DAILY
     Route: 048
     Dates: start: 20090330
  2. GRAN TROXSIN (TROXIPIDE) [Suspect]
     Indication: GASTRITIS EROSIVE
     Dosage: 1GM/DAILY
     Route: 048
     Dates: start: 20090330

REACTIONS (1)
  - HERPES ZOSTER [None]
